FAERS Safety Report 17057123 (Version 1)
Quarter: 2019Q4

REPORT INFORMATION
  Report Type: Spontaneous
  Country: GB (occurrence: GB)
  Receive Date: 20191121
  Receipt Date: 20191121
  Transmission Date: 20200122
  Serious: Yes (Life-Threatening, Hospitalization, Other)
  Sender: FDA-Public Use
  Company Number: GB-AXELLIA-002813

PATIENT
  Age: 15 Year
  Sex: Male
  Weight: 38.9 kg

DRUGS (2)
  1. MEROPENEM. [Suspect]
     Active Substance: MEROPENEM
     Indication: BRONCHIECTASIS
     Route: 042
     Dates: start: 20191009, end: 20191018
  2. VANCOMYCIN [Suspect]
     Active Substance: VANCOMYCIN
     Indication: DEVICE RELATED SEPSIS
     Route: 042
     Dates: start: 20191017, end: 20191018

REACTIONS (8)
  - Swelling face [Unknown]
  - Renal impairment [Unknown]
  - Blood electrolytes abnormal [Unknown]
  - Pruritus [Unknown]
  - Drug reaction with eosinophilia and systemic symptoms [Unknown]
  - Rash erythematous [Unknown]
  - Pyrexia [Unknown]
  - Malaise [Unknown]

NARRATIVE: CASE EVENT DATE: 20191016
